FAERS Safety Report 7216213-X (Version None)
Quarter: 2011Q1

REPORT INFORMATION
  Report Type: 
  Country: None (occurrence: None)
  Receive Date: 20110105
  Receipt Date: 20110105
  Transmission Date: 20110831
  Serious: Yes (Hospitalization)
  Sender: FDA-Public Use
  Company Number: None

PATIENT
  Age: 18 Month
  Sex: Male
  Weight: 7.5 kg

DRUGS (3)
  1. PREDNISOLONE [Concomitant]
  2. KINERET [Suspect]
     Indication: CHRONIC INFANTILE NEUROLOGICAL CUTANEOUS AND ARTICULAR SYNDROME
     Dosage: 0.20ML SUBCUTANEOUS 0.28ML SUBCUTANEOUS
     Route: 058
     Dates: start: 20080423
  3. KINERET [Suspect]
     Indication: CHRONIC INFANTILE NEUROLOGICAL CUTANEOUS AND ARTICULAR SYNDROME
     Dosage: 0.20ML SUBCUTANEOUS 0.28ML SUBCUTANEOUS
     Route: 058
     Dates: start: 20080414, end: 20080422

REACTIONS (2)
  - DECREASED APPETITE [None]
  - LYMPHADENITIS BACTERIAL [None]
